FAERS Safety Report 8657386 (Version 4)
Quarter: 2012Q4

REPORT INFORMATION
  Report Type: 
  Country: JP (occurrence: JP)
  Receive Date: 20120710
  Receipt Date: 20121127
  Transmission Date: 20130627
  Serious: Yes (Hospitalization)
  Sender: FDA-Public Use
  Company Number: JP-AMGEN-JPNSP2012041052

PATIENT
  Age: 60 Year
  Sex: Female
  Weight: 42.5 kg

DRUGS (12)
  1. ENBREL [Suspect]
     Dosage: 25 mg, weekly
     Route: 058
     Dates: start: 20110805, end: 20120305
  2. ENBREL [Suspect]
     Dosage: resumed
     Dates: start: 20120701
  3. PREDONINE                          /00016201/ [Concomitant]
     Dosage: 10 mg, 1x/day
  4. PREDONINE                          /00016201/ [Concomitant]
     Dosage: 7 mg, 1x/day
  5. CINAL [Concomitant]
     Dosage: 1 DF, 3x/day
     Route: 048
     Dates: start: 20050415
  6. FOIPAN [Concomitant]
     Dosage: 100 mg, 3x/day
     Route: 048
     Dates: start: 20050415
  7. OMEPRAL /00661201/ [Concomitant]
     Dosage: 20 mg, 1x/day
     Route: 048
     Dates: start: 20081029
  8. BREDININ [Concomitant]
     Dosage: 150 mg, 1x/day
     Route: 048
     Dates: start: 200504
  9. BONALON [Concomitant]
     Dosage: 35 mg, weekly
     Route: 048
     Dates: start: 200504
  10. PREDNISOLONE [Concomitant]
     Dosage: 3 mg, 2x/day
     Route: 048
     Dates: start: 200504
  11. SENNOSIDE A [Concomitant]
     Dosage: 24 mg, 1x/day
     Route: 048
     Dates: start: 200504
  12. FRAMYCETIN [Concomitant]
     Dosage: UNK

REACTIONS (1)
  - Pemphigoid [Recovering/Resolving]
